FAERS Safety Report 6759397-X (Version None)
Quarter: 2010Q2

REPORT INFORMATION
  Report Type: 
  Country: None (occurrence: None)
  Receive Date: 20100603
  Receipt Date: 20100520
  Transmission Date: 20101027
  Serious: Yes (Hospitalization, Other)
  Sender: FDA-Public Use
  Company Number: JPI-P-010750

PATIENT
  Age: 19 Year
  Sex: Female

DRUGS (1)
  1. XYREM [Suspect]
     Indication: NARCOLEPSY
     Dosage: 4.5 GM (2.25 GM,2 IN 1 D), ORAL;  7.5 GM (3.75 GM,2 IN 1 D), ORAL
     Route: 048
     Dates: start: 20061108

REACTIONS (1)
  - ANEURYSM [None]
